FAERS Safety Report 15993476 (Version 1)
Quarter: 2019Q1

REPORT INFORMATION
  Report Type: Spontaneous
  Country: IT (occurrence: IT)
  Receive Date: 20190222
  Receipt Date: 20190222
  Transmission Date: 20190418
  Serious: Yes (Hospitalization)
  Sender: FDA-Public Use
  Company Number: IT-IPSEN BIOPHARMACEUTICALS, INC.-2019-02685

PATIENT
  Age: 60 Year
  Sex: Female

DRUGS (1)
  1. IPSTYL [Suspect]
     Active Substance: LANREOTIDE ACETATE
     Indication: CARCINOID TUMOUR PULMONARY
     Dosage: NOT REPORTED
     Route: 030

REACTIONS (2)
  - Hypoglycaemic coma [Not Recovered/Not Resolved]
  - Hypoglycaemia [Not Recovered/Not Resolved]
